FAERS Safety Report 4977662-3 (Version None)
Quarter: 2006Q2

REPORT INFORMATION
  Report Type: 
  Country: None (occurrence: None)
  Receive Date: 20060420
  Receipt Date: 20060410
  Transmission Date: 20061013
  Serious: Yes (Hospitalization)
  Sender: FDA-Public Use
  Company Number: PHFR2006GB01406

PATIENT
  Age: 34 Year

DRUGS (2)
  1. CARBAMAZEPINE [Suspect]
     Indication: ILL-DEFINED DISORDER
     Dosage: 1200 MG/DAY
     Route: 065
  2. PHENYTOIN [Suspect]
     Indication: ILL-DEFINED DISORDER
     Dosage: 200 MG/DAY
     Route: 065

REACTIONS (6)
  - COMPLEX PARTIAL SEIZURES [None]
  - COORDINATION ABNORMAL [None]
  - FALL [None]
  - GRAND MAL CONVULSION [None]
  - TRAUMATIC BRAIN INJURY [None]
  - TREMOR [None]
